APPROVED DRUG PRODUCT: LOSARTAN POTASSIUM
Active Ingredient: LOSARTAN POTASSIUM
Strength: 100MG
Dosage Form/Route: TABLET;ORAL
Application: A203835 | Product #003 | TE Code: AB
Applicant: HETERO LABS LTD UNIT V
Approved: Aug 12, 2015 | RLD: No | RS: No | Type: RX